FAERS Safety Report 18931563 (Version 1)
Quarter: 2021Q1

REPORT INFORMATION
  Report Type: Spontaneous
  Country: US (occurrence: US)
  Receive Date: 20210223
  Receipt Date: 20210223
  Transmission Date: 20210420
  Serious: No
  Sender: FDA-Public Use
  Company Number: US-IGSA-SR10009694

PATIENT
  Age: 66 Year
  Sex: Female
  Weight: 71.8 kg

DRUGS (14)
  1. ALBUTEROL                          /00139501/ [Concomitant]
     Active Substance: ALBUTEROL
  2. DICLOFENAC [Concomitant]
     Active Substance: DICLOFENAC
  3. FLUTICASONE. [Concomitant]
     Active Substance: FLUTICASONE
  4. KETOTIFEN [Concomitant]
     Active Substance: KETOTIFEN
  5. MONTELUKAST [Concomitant]
     Active Substance: MONTELUKAST SODIUM
  6. PANTOPRAZOLE [Concomitant]
     Active Substance: PANTOPRAZOLE
  7. VITAMIN D3 [Concomitant]
     Active Substance: CHOLECALCIFEROL
  8. MECLIZINE [Concomitant]
     Active Substance: MECLIZINE HYDROCHLORIDE
  9. BUDESONIDE. [Concomitant]
     Active Substance: BUDESONIDE
  10. DALIRESP [Concomitant]
     Active Substance: ROFLUMILAST
  11. DOXEPIN [Concomitant]
     Active Substance: DOXEPIN
  12. INSULIN [Concomitant]
     Active Substance: INSULIN NOS
  13. METOPROLOL. [Concomitant]
     Active Substance: METOPROLOL
  14. PROLASTIN?C LIQUID [Suspect]
     Active Substance: .ALPHA.1-PROTEINASE INHIBITOR HUMAN
     Indication: ALPHA-1 ANTITRYPSIN DEFICIENCY
     Dosage: 4309 MG, Q.WK.
     Route: 042
     Dates: start: 20190712

REACTIONS (6)
  - Infection [Unknown]
  - Hypersensitivity [Not Recovered/Not Resolved]
  - Cough [Not Recovered/Not Resolved]
  - Asthma [Unknown]
  - Bronchitis [Unknown]
  - Eye haemorrhage [Recovering/Resolving]

NARRATIVE: CASE EVENT DATE: 201907
